FAERS Safety Report 18217633 (Version 1)
Quarter: 2020Q3

REPORT INFORMATION
  Report Type: Spontaneous
  Country: CA (occurrence: CA)
  Receive Date: 20200901
  Receipt Date: 20200901
  Transmission Date: 20201103
  Serious: Yes (Other)
  Sender: FDA-Public Use
  Company Number: CA-CELGENEUS-CAN-20200806884

PATIENT
  Age: 69 Year
  Sex: Male

DRUGS (2)
  1. ABRAXANE [Suspect]
     Active Substance: PACLITAXEL
     Indication: PANCREATIC CARCINOMA METASTATIC
     Dosage: 200
     Route: 041
     Dates: start: 20200730
  2. ABRAXANE [Suspect]
     Active Substance: PACLITAXEL
     Dosage: REDUCED DOSE
     Route: 041
     Dates: start: 202008

REACTIONS (4)
  - Platelet count decreased [Unknown]
  - Fatigue [Unknown]
  - Haemoglobin decreased [Unknown]
  - Sputum discoloured [Unknown]

NARRATIVE: CASE EVENT DATE: 2020
